FAERS Safety Report 8070661-7 (Version None)
Quarter: 2012Q1

REPORT INFORMATION
  Report Type: 
  Country: None (occurrence: None)
  Receive Date: 20120125
  Receipt Date: 20120119
  Transmission Date: 20120608
  Serious: Yes (Other)
  Sender: FDA-Public Use
  Company Number: PHEH2011US009505

PATIENT
  Sex: Male

DRUGS (9)
  1. GILENYA [Suspect]
     Indication: MULTIPLE SCLEROSIS
     Dosage: 0.5 MG, QD
     Route: 048
     Dates: start: 20111019
  2. VITAMIN D [Concomitant]
     Dosage: 1000 IU, QD
     Route: 048
  3. TRILIPIX [Concomitant]
     Dosage: 135 MG, QD
     Route: 048
  4. VESICARE [Concomitant]
     Dosage: 5 MG, QD
     Route: 048
  5. TEGRETOL [Concomitant]
     Indication: NEURALGIA
     Dosage: 1 DF, QID
     Route: 048
  6. KLONOPIN [Concomitant]
     Dosage: 1 DF, TID, PRN
  7. CENTRUM [Concomitant]
     Dosage: 1 DF, QD
  8. NEURONTIN [Concomitant]
     Indication: PAIN
     Dosage: 1 DF, QID
     Route: 048
  9. VICODIN [Concomitant]

REACTIONS (16)
  - CEREBELLAR SYNDROME [None]
  - NYSTAGMUS [None]
  - INTENTION TREMOR [None]
  - RASH [None]
  - AMNESIA [None]
  - READING DISORDER [None]
  - DECREASED VIBRATORY SENSE [None]
  - DYSGRAPHIA [None]
  - PRODUCTIVE COUGH [None]
  - ATAXIA [None]
  - DYSPNOEA [None]
  - DISTURBANCE IN ATTENTION [None]
  - NASOPHARYNGITIS [None]
  - SLUGGISHNESS [None]
  - INFECTION [None]
  - VISUAL IMPAIRMENT [None]
